FAERS Safety Report 25863127 (Version 3)
Quarter: 2025Q4

REPORT INFORMATION
  Report Type: Spontaneous
  Country: JP (occurrence: JP)
  Receive Date: 20250930
  Receipt Date: 20251113
  Transmission Date: 20260117
  Serious: Yes (Hospitalization, Disabling, Other)
  Sender: Haleon PLC
  Company Number: JP-002147023-NVSJ2025JP009601

PATIENT
  Age: 43 Year
  Sex: Male

DRUGS (7)
  1. VOLTAREN [Suspect]
     Active Substance: DICLOFENAC SODIUM
     Indication: Pharyngitis
     Dosage: 25 MG, TID
     Route: 048
     Dates: start: 20230131, end: 20230202
  2. Azunol [Concomitant]
     Indication: Oropharyngeal pain
     Dosage: UNK, 6QD, OROPHARYNGEAL USE
     Dates: start: 20230130, end: 20230202
  3. DIBEKACIN SULFATE [Concomitant]
     Active Substance: DIBEKACIN SULFATE
     Indication: Bacterial infection
     Dosage: 100 MG, QD
     Route: 058
     Dates: start: 20230131
  4. CLARITHROMYCIN [Concomitant]
     Active Substance: CLARITHROMYCIN
     Indication: Bacterial infection
     Dosage: 200 MG, BID
     Route: 048
     Dates: start: 20230131, end: 20230202
  5. CALONAL [Concomitant]
     Active Substance: ACETAMINOPHEN
     Indication: Pyrexia
     Dosage: 400 MG, PRN
     Route: 048
     Dates: start: 20230130, end: 20230202
  6. CALONAL [Concomitant]
     Active Substance: ACETAMINOPHEN
     Indication: Pain
  7. TRANSAMIN [Concomitant]
     Active Substance: TRANEXAMIC ACID
     Indication: Inflammation
     Dosage: 250 MG, TID
     Route: 048
     Dates: start: 20230130, end: 20230202

REACTIONS (3)
  - Oral administration complication [Unknown]
  - Toxic epidermal necrolysis [Unknown]
  - Visual impairment [Unknown]

NARRATIVE: CASE EVENT DATE: 20230202
